FAERS Safety Report 10106595 (Version 2)
Quarter: 2014Q3

REPORT INFORMATION
  Report Type: Other
  Country: US (occurrence: US)
  Receive Date: 20140424
  Receipt Date: 20140812
  Transmission Date: 20150326
  Serious: Yes (Death, Other)
  Sender: FDA-Public Use
  Company Number: US-GSKPPD-2014GSK002371

PATIENT
  Age: 55 Year
  Sex: Male
  Weight: 124.4 kg

DRUGS (4)
  1. AVANDIA [Suspect]
     Active Substance: ROSIGLITAZONE MALEATE
     Indication: DIABETES MELLITUS
     Route: 048
     Dates: start: 1999
  2. COUMADIN [Concomitant]
     Active Substance: WARFARIN SODIUM
  3. FUROSEMIDE. [Concomitant]
     Active Substance: FUROSEMIDE
  4. ZAROXOLYN [Concomitant]
     Active Substance: METOLAZONE

REACTIONS (3)
  - Myocardial infarction [None]
  - Myocardial ischaemia [None]
  - Cardiac failure congestive [Fatal]

NARRATIVE: CASE EVENT DATE: 1999
